FAERS Safety Report 7815832-7 (Version None)
Quarter: 2011Q4

REPORT INFORMATION
  Report Type: 
  Country: None (occurrence: None)
  Receive Date: 20111014
  Receipt Date: 20111006
  Transmission Date: 20120403
  Serious: Yes (Other)
  Sender: FDA-Public Use
  Company Number: PHHY2011FR88928

PATIENT
  Age: 82 Year
  Sex: Male

DRUGS (4)
  1. RAMIPRIL [Suspect]
     Dosage: UNK
  2. CRESTOR [Concomitant]
     Dosage: UNK
  3. ASPIRIN [Concomitant]
     Dosage: UNK
  4. METFORMIN HYDROCHLORIDE [Suspect]
     Dosage: UNK

REACTIONS (1)
  - ANGIOEDEMA [None]
